FAERS Safety Report 22533900 (Version 1)
Quarter: 2023Q2

REPORT INFORMATION
  Report Type: Spontaneous
  Country: None (occurrence: A1)
  Receive Date: 20230608
  Receipt Date: 20230608
  Transmission Date: 20230721
  Serious: No
  Sender: FDA-Public Use
  Company Number: A1-Armstrong Pharmaceuticals, Inc.-2142453

PATIENT
  Age: 70 Year
  Sex: Female
  Weight: 50.909 kg

DRUGS (1)
  1. PRIMATENE MIST [Suspect]
     Active Substance: EPINEPHRINE
     Indication: Bronchitis
     Route: 055

REACTIONS (2)
  - Dizziness [Unknown]
  - Heart rate increased [Unknown]

NARRATIVE: CASE EVENT DATE: 20230121
